FAERS Safety Report 4707614-X (Version None)
Quarter: 2005Q3

REPORT INFORMATION
  Report Type: 
  Country: None (occurrence: None)
  Receive Date: 20050706
  Receipt Date: 20050217
  Transmission Date: 20060218
  Serious: Yes (Hospitalization, Disabling)
  Sender: FDA-Public Use
  Company Number: DE-MERCK-0502DEU00158

PATIENT
  Age: 49 Year
  Sex: Female

DRUGS (4)
  1. VIOXX [Suspect]
     Indication: BACK PAIN
     Route: 048
     Dates: start: 20020401, end: 20040629
  2. VIOXX [Suspect]
     Route: 048
     Dates: end: 20040901
  3. AMITRIPTYLINE HYDROCHLORIDE [Concomitant]
     Indication: PAIN
     Route: 048
     Dates: start: 20020401, end: 20020430
  4. PREDNISONE [Concomitant]
     Indication: AUTOIMMUNE HEPATITIS
     Route: 048
     Dates: start: 20010710, end: 20040626

REACTIONS (5)
  - CEREBROVASCULAR ACCIDENT [None]
  - OVERDOSE [None]
  - SICCA SYNDROME [None]
  - SPEECH DISORDER [None]
  - THALAMIC SYNDROME [None]
